FAERS Safety Report 18334894 (Version 1)
Quarter: 2020Q4

REPORT INFORMATION
  Report Type: Spontaneous
  Country: FR (occurrence: FR)
  Receive Date: 20201001
  Receipt Date: 20201001
  Transmission Date: 20210113
  Serious: Yes (Life-Threatening)
  Sender: FDA-Public Use
  Company Number: FR-MYLANLABS-2020M1079485

PATIENT
  Age: 54 Year
  Sex: Male
  Weight: 105 kg

DRUGS (5)
  1. AMLODIPINE/VALSARTAN MYLAN 10 MG/160 MG FILM-COATED TABLETS [Suspect]
     Active Substance: AMLODIPINE\VALSARTAN
     Dosage: UNK
     Route: 048
     Dates: start: 202008, end: 20200907
  2. EXFORGE [Concomitant]
     Active Substance: AMLODIPINE BESYLATE\VALSARTAN
     Dosage: UNK
     Route: 048
     Dates: start: 202009
  3. LIPTRUZET [Concomitant]
     Active Substance: ATORVASTATIN CALCIUM\EZETIMIBE
     Indication: HYPERCHOLESTEROLAEMIA
     Dosage: 1 DOSAGE FORM, QD,IN EVENING
     Route: 048
     Dates: start: 201710
  4. AMLODIPINE/VALSARTAN MYLAN 10 MG/160 MG FILM-COATED TABLETS [Suspect]
     Active Substance: AMLODIPINE\VALSARTAN
     Indication: HYPERTENSION
     Dosage: 1 DOSAGE FORM, QD EACH MORNING
     Route: 048
     Dates: start: 20200220, end: 202006
  5. ACETYLSALICYLIC ACID [Concomitant]
     Active Substance: ASPIRIN
     Indication: EMBOLISM
     Dosage: 1 DOSAGE FORM, QD EACH MORNING
     Route: 048
     Dates: start: 20200525

REACTIONS (2)
  - Blood pressure increased [Recovered/Resolved]
  - Headache [Unknown]

NARRATIVE: CASE EVENT DATE: 20200826
